FAERS Safety Report 11291828 (Version 1)
Quarter: 2015Q3

REPORT INFORMATION
  Report Type: Spontaneous
  Country: None (occurrence: None)
  Receive Date: 20150721
  Receipt Date: 20150721
  Transmission Date: 20151125
  Serious: No
  Sender: FDA-Public Use
  Company Number: None

PATIENT
  Age: 56 Year
  Sex: Female
  Weight: 81.65 kg

DRUGS (3)
  1. COPAXONE OCCASIONAL XANAX [Concomitant]
  2. VITAMIN D [Concomitant]
     Active Substance: CHOLECALCIFEROL
  3. COPAXONE [Suspect]
     Active Substance: GLATIRAMER ACETATE
     Indication: MULTIPLE SCLEROSIS
     Dosage: 1 SYRINGE ?INJECTION
     Route: 058

REACTIONS (9)
  - Chest pain [None]
  - Pain in jaw [None]
  - Malaise [None]
  - Feeling hot [None]
  - Heart rate irregular [None]
  - Muscle spasms [None]
  - Tremor [None]
  - Palpitations [None]
  - Chills [None]

NARRATIVE: CASE EVENT DATE: 20150717
